FAERS Safety Report 7407388-8 (Version None)
Quarter: 2011Q2

REPORT INFORMATION
  Report Type: 
  Country: None (occurrence: None)
  Receive Date: 20110411
  Receipt Date: 20110405
  Transmission Date: 20111010
  Serious: Yes (Hospitalization)
  Sender: FDA-Public Use
  Company Number: JP-MERCK-1104USA00647

PATIENT
  Age: 51 Year
  Sex: Female
  Weight: 49 kg

DRUGS (8)
  1. NONSTEROIDAL ANTI-INFLAMMATORY DRUG (UNSPECIFIED) [Concomitant]
     Route: 065
  2. ISONIAZID [Concomitant]
     Indication: ANTIBIOTIC PROPHYLAXIS
     Route: 065
     Dates: start: 20110118, end: 20110126
  3. OMEPRAL [Concomitant]
     Indication: GASTRIC ULCER
     Route: 065
  4. VOLTAREN [Concomitant]
     Indication: ANALGESIC THERAPY
     Route: 065
  5. FOSAMAX [Suspect]
     Indication: OSTEOPOROSIS
     Route: 048
  6. ENBREL [Suspect]
     Indication: RHEUMATOID ARTHRITIS
     Route: 058
     Dates: start: 20110119, end: 20110126
  7. PREDNISOLONE [Concomitant]
     Route: 065
  8. RHEUMATREX [Concomitant]
     Route: 065

REACTIONS (3)
  - CHILLS [None]
  - ANAPHYLACTOID REACTION [None]
  - FEELING ABNORMAL [None]
